FAERS Safety Report 5224233-X (Version None)
Quarter: 2007Q1

REPORT INFORMATION
  Report Type: 
  Country: None (occurrence: None)
  Receive Date: 20070130
  Receipt Date: 20070122
  Transmission Date: 20070707
  Serious: Yes (Other)
  Sender: FDA-Public Use
  Company Number: DE-SHR-DE-2006-027183

PATIENT
  Age: 44 Year
  Sex: Female
  Weight: 62 kg

DRUGS (3)
  1. ULTRAVIST 370 [Suspect]
     Dosage: 40 ML, 1 DOSE
     Route: 022
     Dates: start: 20060614, end: 20060614
  2. ACETYLSALICYLIC ACID [Concomitant]
  3. BISOPROLOL FUMARATE [Concomitant]
     Dosage: 2.5 MG, UNK

REACTIONS (2)
  - DEEP VEIN THROMBOSIS [None]
  - PAIN IN EXTREMITY [None]
